FAERS Safety Report 7775782-1 (Version None)
Quarter: 2011Q3

REPORT INFORMATION
  Report Type: 
  Country: None (occurrence: None)
  Receive Date: 20110923
  Receipt Date: 20061114
  Transmission Date: 20111222
  Serious: Yes (Hospitalization)
  Sender: FDA-Public Use
  Company Number: DK-ASTRAZENECA-2006SE04987

PATIENT
  Age: 8566 Day
  Sex: Male

DRUGS (3)
  1. SEROQUEL [Suspect]
     Indication: SCHIZOPHRENIA
     Route: 048
     Dates: start: 20050718
  2. ABILIFY [Suspect]
     Indication: SCHIZOPHRENIA
     Route: 048
     Dates: start: 20050616
  3. TOPAMAX [Concomitant]
     Dates: start: 20050120

REACTIONS (3)
  - MONONEURITIS [None]
  - HEADACHE [None]
  - NAUSEA [None]
